FAERS Safety Report 6083622-4 (Version None)
Quarter: 2009Q1

REPORT INFORMATION
  Report Type: 
  Country: None (occurrence: None)
  Receive Date: 20090219
  Receipt Date: 20090210
  Transmission Date: 20090719
  Serious: Yes (Other)
  Sender: FDA-Public Use
  Company Number: IT-ASTRAZENECA-2009SE00739

PATIENT
  Age: 408 Day
  Sex: Female

DRUGS (2)
  1. OMEPRAZOLE [Suspect]
     Indication: GASTROOESOPHAGEAL REFLUX DISEASE
     Route: 048
     Dates: start: 20080807, end: 20090105
  2. FENOBARBITALE SODICO [Suspect]
     Indication: NEONATAL ASPHYXIA
     Route: 048
     Dates: start: 20081224, end: 20090105

REACTIONS (2)
  - HAEMATURIA [None]
  - MELAENA [None]
